FAERS Safety Report 6835860-8 (Version None)
Quarter: 2010Q3

REPORT INFORMATION
  Report Type: 
  Country: None (occurrence: None)
  Receive Date: 20100713
  Receipt Date: 20100705
  Transmission Date: 20110219
  Serious: Yes (Other)
  Sender: FDA-Public Use
  Company Number: DE-JNJFOC-20100701734

PATIENT
  Age: 63 Year
  Sex: Male

DRUGS (7)
  1. RISPERDAL [Suspect]
     Indication: DEMENTIA OF THE ALZHEIMER'S TYPE, WITH DEPRESSED MOOD
     Route: 048
     Dates: start: 20080617, end: 20080617
  2. ATACAND [Concomitant]
     Indication: HYPERTENSION
     Route: 048
     Dates: start: 20060101
  3. GABAPENTIN [Concomitant]
     Indication: GRAND MAL CONVULSION
     Route: 048
     Dates: start: 20070701
  4. HYDROCHLOROTHIAZIDE [Concomitant]
     Indication: HYPERTENSION
     Route: 048
     Dates: start: 20060101
  5. CIPRAMIL [Concomitant]
     Indication: DEMENTIA OF THE ALZHEIMER'S TYPE, WITH DEPRESSED MOOD
     Route: 048
     Dates: start: 20080201
  6. SEROQUEL [Concomitant]
     Indication: DEMENTIA OF THE ALZHEIMER'S TYPE, WITH DEPRESSED MOOD
     Route: 048
  7. SEROQUEL [Concomitant]
     Route: 048

REACTIONS (1)
  - PLEUROTHOTONUS [None]
